FAERS Safety Report 25511908 (Version 4)
Quarter: 2025Q3

REPORT INFORMATION
  Report Type: Spontaneous
  Country: US (occurrence: US)
  Receive Date: 20250703
  Receipt Date: 20250821
  Transmission Date: 20251021
  Serious: Yes (Other)
  Sender: FENNEC PHARMACEUTICALS
  Company Number: US-FENNEC PHARMACEUTICALS, INC.-2025FEN00047

PATIENT
  Age: 58 Year
  Sex: Female
  Weight: 74.8 kg

DRUGS (28)
  1. PEDMARK [Suspect]
     Active Substance: SODIUM THIOSULFATE
     Indication: Chemotherapy side effect prophylaxis
     Route: 042
     Dates: start: 20250409, end: 20250409
  2. PEDMARK [Suspect]
     Active Substance: SODIUM THIOSULFATE
     Route: 042
     Dates: start: 20250605, end: 20250605
  3. PEDMARK [Suspect]
     Active Substance: SODIUM THIOSULFATE
     Route: 042
     Dates: start: 20250729, end: 20250729
  4. PEDMARK [Suspect]
     Active Substance: SODIUM THIOSULFATE
     Route: 042
     Dates: start: 20250805, end: 20250805
  5. PEDMARK [Suspect]
     Active Substance: SODIUM THIOSULFATE
     Route: 042
     Dates: start: 20250812, end: 20250812
  6. CISPLATIN [Concomitant]
     Active Substance: CISPLATIN
     Dosage: 40 MG/M2, WEEKLY X 6-7 WEEKS
     Dates: start: 20250529
  7. CISPLATIN [Concomitant]
     Active Substance: CISPLATIN
     Dosage: 75 MG/M2, EVERY 21 DAYS X 2 CYCLES
     Route: 042
  8. TAXOTERE [Concomitant]
     Active Substance: DOCETAXEL
  9. PEMBROLIZUMAB [Concomitant]
     Active Substance: PEMBROLIZUMAB
  10. ATIVAN [Concomitant]
     Active Substance: LORAZEPAM
     Route: 048
     Dates: start: 20250605
  11. DECADRON [Concomitant]
     Active Substance: DEXAMETHASONE
  12. DECADRON [Concomitant]
     Active Substance: DEXAMETHASONE
     Route: 042
     Dates: start: 20250605
  13. PEPCID [Concomitant]
     Active Substance: FAMOTIDINE
     Route: 042
  14. COMPAZINE [Concomitant]
     Active Substance: PROCHLORPERAZINE MALEATE
     Route: 042
  15. ONDANSETRON [Concomitant]
     Active Substance: ONDANSETRON
     Route: 042
     Dates: start: 20250409
  16. REGLAN [Concomitant]
     Active Substance: METOCLOPRAMIDE HYDROCHLORIDE
     Route: 042
  17. SALINE [AMMONIUM ACETATE;CAMPHORA OFFICINARUM EXTRACT;SODIUM CITRATE;S [Concomitant]
  18. CLARITIN [Concomitant]
     Active Substance: LORATADINE
     Dosage: 10 MG (PRE-MEDICATION FOR INFUSION)
     Route: 048
  19. LIPITOR [Concomitant]
     Active Substance: ATORVASTATIN CALCIUM
     Dosage: 40 MG, 1X/DAY
     Route: 048
  20. TESSALON [Concomitant]
     Active Substance: BENZONATATE
     Route: 048
  21. ZYRTEC [Concomitant]
     Active Substance: CETIRIZINE HYDROCHLORIDE
     Dosage: 10 MG, 1X/DAY
     Route: 048
  22. FLONASE ALLERGY RELIEF [Concomitant]
     Active Substance: FLUTICASONE PROPIONATE
     Dosage: 1 SPRAY, 2X/DAY IN EACH NOSTRIL
     Route: 045
  23. LUMIGAN [Concomitant]
     Active Substance: BIMATOPROST
     Dosage: 1 DROP, 1X/DAY AT NIGHT IN EACH EYE
  24. GLUCOPHAGE [Concomitant]
     Active Substance: METFORMIN HYDROCHLORIDE
     Dosage: 1000 MG, 2X/DAY MORNING AND EVENING
     Route: 048
  25. NABUMETONE [Concomitant]
     Active Substance: NABUMETONE
     Dosage: 750 MG, 2X/DAY, AS NEEDED
  26. PRILOSEC [Concomitant]
     Active Substance: OMEPRAZOLE MAGNESIUM
     Dosage: 20 MG, 1X/DAY IN THE MORNING
     Route: 048
  27. ZYRTEC [Concomitant]
     Active Substance: CETIRIZINE HYDROCHLORIDE
     Dosage: 10 MG, 1X/DAY, IN THE MORNING
  28. ROMYCIN [ERYTHROMYCIN] [Concomitant]

REACTIONS (15)
  - Hypoacusis [Not Recovered/Not Resolved]
  - Syncope [Unknown]
  - Fatigue [Not Recovered/Not Resolved]
  - Peripheral coldness [Unknown]
  - Pallor [Unknown]
  - Abdominal discomfort [Unknown]
  - Infusion site pain [Unknown]
  - Infusion site bruising [Unknown]
  - Dysphagia [Not Recovered/Not Resolved]
  - Feeding disorder [Not Recovered/Not Resolved]
  - Dysuria [Not Recovered/Not Resolved]
  - Nausea [Not Recovered/Not Resolved]
  - Vomiting [Unknown]
  - Inappropriate schedule of product administration [Recovered/Resolved]
  - Off label use [Not Recovered/Not Resolved]

NARRATIVE: CASE EVENT DATE: 20250401
